FAERS Safety Report 7156871-1 (Version None)
Quarter: 2010Q4

REPORT INFORMATION
  Report Type: 
  Country: None (occurrence: None)
  Receive Date: 20101214
  Receipt Date: 20101130
  Transmission Date: 20110411
  Serious: Yes (Hospitalization)
  Sender: FDA-Public Use
  Company Number: PHHY2010FI81209

PATIENT
  Sex: Male
  Weight: 72 kg

DRUGS (2)
  1. LESCOL [Suspect]
     Indication: BLOOD CHOLESTEROL DECREASED
     Dosage: 80 MG
     Route: 048
     Dates: start: 20050101, end: 20101026
  2. OMEGA [Concomitant]
     Dosage: UNK
     Route: 048
     Dates: end: 20101026

REACTIONS (16)
  - ANTINUCLEAR ANTIBODY POSITIVE [None]
  - ATELECTASIS [None]
  - CHRONIC LYMPHOCYTIC LEUKAEMIA [None]
  - DNA ANTIBODY POSITIVE [None]
  - HAEMATURIA [None]
  - HERPES ZOSTER [None]
  - LYMPHADENOPATHY [None]
  - OEDEMA [None]
  - PLEURAL EFFUSION [None]
  - PLEURAL FIBROSIS [None]
  - PROTEINURIA [None]
  - RASH [None]
  - SCAB [None]
  - SINUSITIS [None]
  - SYSTEMIC LUPUS ERYTHEMATOSUS [None]
  - URTICARIA [None]
